FAERS Safety Report 24979948 (Version 1)
Quarter: 2025Q1

REPORT INFORMATION
  Report Type: Spontaneous
  Country: US (occurrence: US)
  Receive Date: 20250218
  Receipt Date: 20250218
  Transmission Date: 20250408
  Serious: Yes (Other)
  Sender: CATALYST PHARMA
  Company Number: US-CATALYSTPHARMACEUTICALPARTNERS-EC-2021-088568

PATIENT
  Age: 36 Year
  Sex: Male

DRUGS (3)
  1. FYCOMPA [Suspect]
     Active Substance: PERAMPANEL
     Indication: Seizure
     Dosage: 4 MILLIGRAM, QD
     Route: 048
     Dates: start: 202009
  2. FYCOMPA [Suspect]
     Active Substance: PERAMPANEL
     Indication: Bone cancer
     Dosage: 6 MILLIGRAM, EVERY NIGHT AT BEDTIME
     Route: 048
  3. FYCOMPA [Suspect]
     Active Substance: PERAMPANEL
     Indication: Chondrosarcoma

REACTIONS (5)
  - Seizure [Recovered/Resolved]
  - Personality change [Unknown]
  - Memory impairment [Unknown]
  - Product use in unapproved indication [Unknown]
  - Expired product administered [Unknown]

NARRATIVE: CASE EVENT DATE: 20201101
